FAERS Safety Report 9745175 (Version 3)
Quarter: 2013Q4

REPORT INFORMATION
  Report Type: Spontaneous
  Country: IT (occurrence: IT)
  Receive Date: 20131211
  Receipt Date: 20131227
  Transmission Date: 20140711
  Serious: Yes (Hospitalization)
  Sender: FDA-Public Use
  Company Number: IT-RANBAXY-2013RR-76052

PATIENT
  Age: 59 Year
  Sex: Male

DRUGS (6)
  1. AMOXICILLIN [Suspect]
     Indication: PRODUCTIVE COUGH
     Dosage: 1 DOSAGE UNIT DAILY
     Route: 048
     Dates: start: 20131112, end: 20131115
  2. SINTROM [Suspect]
     Indication: VENOUS THROMBOSIS
     Dosage: 4 MG DAILY
     Route: 048
     Dates: start: 20060101, end: 20131116
  3. EFEXOR [Concomitant]
     Indication: PRODUCT USED FOR UNKNOWN INDICATION
     Dosage: UNK
     Route: 065
  4. SEQUACOR [Concomitant]
     Indication: PRODUCT USED FOR UNKNOWN INDICATION
     Route: 065
  5. PARIET [Concomitant]
     Indication: PRODUCT USED FOR UNKNOWN INDICATION
     Route: 065
  6. ALFUZOSIN [Suspect]
     Indication: PRODUCT USED FOR UNKNOWN INDICATION
     Dosage: UNK
     Route: 065

REACTIONS (3)
  - Haemoptysis [Recovering/Resolving]
  - Pneumonia [Recovered/Resolved]
  - Liver disorder [Recovered/Resolved]
